FAERS Safety Report 7780878-4 (Version None)
Quarter: 2011Q3

REPORT INFORMATION
  Report Type: 
  Country: None (occurrence: None)
  Receive Date: 20110927
  Receipt Date: 20110919
  Transmission Date: 20111222
  Serious: Yes (Death, Hospitalization, Other)
  Sender: FDA-Public Use
  Company Number: FR-PFIZER INC-2011221066

PATIENT
  Age: 81 Year
  Sex: Male

DRUGS (14)
  1. BISOPROLOL FUMARATE [Concomitant]
     Dosage: UNK
  2. NEXIUM [Concomitant]
     Dosage: UNK
     Route: 048
  3. ATACAND [Concomitant]
     Dosage: UNK
     Route: 048
  4. METFORMIN [Concomitant]
     Dosage: UNK
  5. PLAVIX [Concomitant]
     Dosage: UNK
  6. EFFEXOR XR [Suspect]
     Indication: DEPRESSION
     Dosage: UNK
     Route: 048
     Dates: start: 20110512, end: 20110515
  7. ESCITALOPRAM OXALATE [Concomitant]
     Dosage: UNK
     Dates: end: 20110512
  8. LASIX [Concomitant]
     Dosage: UNK
  9. FUROSEMIDE [Concomitant]
     Dosage: UNK
  10. TOPLEXIL [Concomitant]
     Dosage: UNK
  11. GAVISCON [Concomitant]
     Dosage: UNK
  12. SPECIAFOLDINE [Concomitant]
     Dosage: UNK
  13. FENOFIBRATE [Concomitant]
     Dosage: UNK
  14. ATARAX [Concomitant]
     Dosage: UNK

REACTIONS (4)
  - HYPONATRAEMIA [None]
  - CONFUSIONAL STATE [None]
  - HYPOVENTILATION [None]
  - INAPPROPRIATE ANTIDIURETIC HORMONE SECRETION [None]
